FAERS Safety Report 7770221-9 (Version None)
Quarter: 2011Q3

REPORT INFORMATION
  Report Type: 
  Country: None (occurrence: None)
  Receive Date: 20110922
  Receipt Date: 20110418
  Transmission Date: 20111222
  Serious: No
  Sender: FDA-Public Use
  Company Number: US-ASTRAZENECA-2011SE22628

PATIENT
  Sex: Female

DRUGS (3)
  1. SEROQUEL XR [Suspect]
     Indication: BIPOLAR DISORDER
     Route: 048
     Dates: start: 20110401
  2. SEROQUEL XR [Suspect]
     Dosage: CUTTING THE TABLETS INTO EIGHTS.
     Route: 048
     Dates: start: 20110401
  3. ANTI-DEPRESSANT [Concomitant]

REACTIONS (2)
  - SEDATION [None]
  - WRONG TECHNIQUE IN DRUG USAGE PROCESS [None]
